FAERS Safety Report 16121243 (Version 1)
Quarter: 2019Q1

REPORT INFORMATION
  Report Type: Spontaneous
  Country: GB (occurrence: GB)
  Receive Date: 20190327
  Receipt Date: 20190327
  Transmission Date: 20190418
  Serious: Yes (Other)
  Sender: FDA-Public Use
  Company Number: GB-ACCORD-115011

PATIENT
  Age: 59 Year

DRUGS (2)
  1. SULPIRIDE [Concomitant]
     Active Substance: SULPIRIDE
  2. CLOZAPINE. [Suspect]
     Active Substance: CLOZAPINE
     Indication: SCHIZOPHRENIA

REACTIONS (2)
  - Hypogammaglobulinaemia [Unknown]
  - Secondary immunodeficiency [Not Recovered/Not Resolved]
